FAERS Safety Report 9682840 (Version 2)
Quarter: 2013Q4

REPORT INFORMATION
  Report Type: Report from Study
  Country: VN (occurrence: VN)
  Receive Date: 20131112
  Receipt Date: 20131122
  Transmission Date: 20140711
  Serious: Yes (Death, Other)
  Sender: FDA-Public Use
  Company Number: PHHY2013VN128052

PATIENT
  Age: 59 Year
  Sex: Male

DRUGS (2)
  1. GLIVEC [Suspect]
     Indication: CHRONIC MYELOID LEUKAEMIA
     Dosage: 400 MG, QD
     Route: 048
     Dates: start: 20130325, end: 20131011
  2. ANTIBIOTICS [Concomitant]
     Dosage: UNK UKN, UNK

REACTIONS (8)
  - Respiratory failure [Fatal]
  - Lung neoplasm malignant [Unknown]
  - Second primary malignancy [Unknown]
  - Dyspnoea [Unknown]
  - Chest pain [Unknown]
  - Mass [Unknown]
  - Pleural effusion [Unknown]
  - Platelet count decreased [Unknown]
